FAERS Safety Report 11599666 (Version 1)
Quarter: 2015Q3

REPORT INFORMATION
  Report Type: Spontaneous
  Country: US (occurrence: US)
  Receive Date: 20150916
  Receipt Date: 20150916
  Transmission Date: 20151125
  Serious: No
  Sender: FDA-Public Use
  Company Number: US-ELI_LILLY_AND_COMPANY-US200710003593

PATIENT
  Age: 58 Year
  Sex: Female
  Weight: 81.63 kg

DRUGS (5)
  1. FORTEO [Suspect]
     Active Substance: TERIPARATIDE
     Indication: OSTEOPOROSIS
     Dosage: 20 UG, DAILY (1/D)
     Route: 058
     Dates: start: 200708
  2. ULTRAM [Concomitant]
     Active Substance: TRAMADOL HYDROCHLORIDE
  3. CALCIUM [Concomitant]
     Active Substance: CALCIUM
     Indication: OSTEOPOROSIS
  4. MUSCLE RELAXANTS [Concomitant]
     Active Substance: UNSPECIFIED INGREDIENT
     Indication: SPINAL COMPRESSION FRACTURE
  5. VITAMIN D [Concomitant]
     Active Substance: CHOLECALCIFEROL
     Indication: OSTEOPOROSIS

REACTIONS (13)
  - Heart rate irregular [Recovered/Resolved]
  - Discomfort [Recovering/Resolving]
  - Head discomfort [Not Recovered/Not Resolved]
  - Vasodilatation [Not Recovered/Not Resolved]
  - Tension headache [Not Recovered/Not Resolved]
  - Haematoma [Recovered/Resolved]
  - Musculoskeletal discomfort [Not Recovered/Not Resolved]
  - Muscle spasms [Recovering/Resolving]
  - Back disorder [Recovering/Resolving]
  - Arrhythmia [Recovered/Resolved]
  - Chest discomfort [Not Recovered/Not Resolved]
  - Back pain [Recovering/Resolving]
  - Injection site bruising [Recovering/Resolving]

NARRATIVE: CASE EVENT DATE: 200709
